FAERS Safety Report 7408072-7 (Version None)
Quarter: 2011Q2

REPORT INFORMATION
  Report Type: 
  Country: None (occurrence: None)
  Receive Date: 20110412
  Receipt Date: 20110404
  Transmission Date: 20111010
  Serious: Yes (Other)
  Sender: FDA-Public Use
  Company Number: US-B.I. PHARMACEUTICALS,INC./RIDGEFIELD-2011-BP-10321BP

PATIENT
  Sex: Female

DRUGS (3)
  1. CATAPRES [Suspect]
     Dosage: 0.3 MG
     Dates: start: 20110301
  2. AMLODIPINE [Concomitant]
     Dosage: 10 MG
  3. PROPRANOLOL [Concomitant]
     Dosage: 240 MG

REACTIONS (1)
  - BLOOD PRESSURE DIASTOLIC INCREASED [None]
